FAERS Safety Report 4299603-7 (Version None)
Quarter: 2004Q1

REPORT INFORMATION
  Report Type: 
  Country: None (occurrence: None)
  Receive Date: 20040217
  Receipt Date: 20040130
  Transmission Date: 20041129
  Serious: Yes (Hospitalization, Disabling)
  Sender: FDA-Public Use
  Company Number: K200400129

PATIENT
  Age: 5 Year
  Sex: Female

DRUGS (2)
  1. SEPTRA /SEPTRA DS  (TRIMETHOPRIM, SULFAMETHOXAZOLE) [Suspect]
  2. CEFTRIAXONE [Suspect]

REACTIONS (11)
  - CEREBRAL ISCHAEMIA [None]
  - CORTICAL LAMINAR NECROSIS [None]
  - GENERAL PHYSICAL HEALTH DETERIORATION [None]
  - GRAND MAL CONVULSION [None]
  - HAEMATURIA [None]
  - HAEMOLYSIS [None]
  - HAEMOLYTIC ANAEMIA [None]
  - LEUKOCYTOSIS [None]
  - LOSS OF CONSCIOUSNESS [None]
  - NUCLEAR MAGNETIC RESONANCE IMAGING BRAIN ABNORMAL [None]
  - URINARY TRACT INFECTION [None]
